FAERS Safety Report 6199475-X (Version None)
Quarter: 2009Q2

REPORT INFORMATION
  Report Type: 
  Country: None (occurrence: None)
  Receive Date: 20090522
  Receipt Date: 20090512
  Transmission Date: 20091009
  Serious: Yes (Hospitalization)
  Sender: FDA-Public Use
  Company Number: BE-PFIZER INC-2009212968

PATIENT
  Age: 43 Year

DRUGS (3)
  1. FARMORUBICIN [Suspect]
     Indication: BREAST CANCER
     Dosage: 100 MG/M2, UNK
     Route: 042
     Dates: start: 20090304
  2. ADRUCIL [Suspect]
     Indication: BREAST CANCER
     Dosage: 500 MG/M2, UNK
     Route: 042
     Dates: start: 20090304
  3. ENDOXAN [Suspect]
     Indication: BREAST CANCER
     Dosage: 500 MG/M2, UNK
     Route: 042
     Dates: start: 20090304

REACTIONS (2)
  - FEBRILE NEUTROPENIA [None]
  - OROPHARYNGEAL PAIN [None]
